FAERS Safety Report 8412488-X (Version None)
Quarter: 2012Q2

REPORT INFORMATION
  Report Type: 
  Country: None (occurrence: None)
  Receive Date: 20120605
  Receipt Date: 20120521
  Transmission Date: 20120825
  Serious: No
  Sender: FDA-Public Use
  Company Number: US-AMGEN-USASP2012031868

PATIENT
  Age: 45 Year
  Sex: Female

DRUGS (2)
  1. ENBREL [Suspect]
     Indication: RHEUMATOID ARTHRITIS
     Dosage: 50 MG, QWK
     Dates: start: 20111202, end: 20120501
  2. PLAQUENIL [Concomitant]
     Dosage: 2 MG, UNK
     Dates: start: 20000101

REACTIONS (7)
  - VISION BLURRED [None]
  - SINUSITIS [None]
  - BRONCHITIS [None]
  - CONTUSION [None]
  - WHITE BLOOD CELL COUNT ABNORMAL [None]
  - RED BLOOD CELL COUNT ABNORMAL [None]
  - LUNG INFECTION [None]
